FAERS Safety Report 26129079 (Version 1)
Quarter: 2025Q4

REPORT INFORMATION
  Report Type: Spontaneous
  Country: EU (occurrence: EU)
  Receive Date: 20251208
  Receipt Date: 20251208
  Transmission Date: 20260117
  Serious: Yes (Death, Other)
  Sender: BAXTER
  Company Number: None

PATIENT
  Age: 6 Year
  Weight: 17 kg

DRUGS (2)
  1. PROPOFOL [Suspect]
     Active Substance: PROPOFOL
     Indication: Sedation
     Dosage: 150 MG, TOTAL (5 VIALS OF 20 ML)
     Route: 042
     Dates: start: 20251120, end: 20251120
  2. MIDAZOLAM HYDROCHLORIDE [Suspect]
     Active Substance: MIDAZOLAM HYDROCHLORIDE
     Indication: Sedation
     Dosage: 2 MG TOTAL (1 MG/ML INJECTABLE AND INFUSING SOLUTION EFG, 10 AMPOULES OF 5 ML)
     Route: 042
     Dates: start: 20251120, end: 20251120

REACTIONS (4)
  - Cardio-respiratory arrest [Fatal]
  - Somnolence [Fatal]
  - Pyrexia [Fatal]
  - Vomiting [Fatal]

NARRATIVE: CASE EVENT DATE: 20251120
